FAERS Safety Report 6657675-6 (Version None)
Quarter: 2010Q1

REPORT INFORMATION
  Report Type: 
  Country: None (occurrence: None)
  Receive Date: 20100330
  Receipt Date: 20100318
  Transmission Date: 20100710
  Serious: Yes (Other)
  Sender: FDA-Public Use
  Company Number: JP-BAYER-200911975BYL

PATIENT
  Age: 80 Year
  Sex: Female

DRUGS (2)
  1. ADALAT CC [Suspect]
     Indication: HYPERTENSION
     Dosage: TOTAL DAILY DOSE: 40 MG  UNIT DOSE: 40 MG
     Route: 048
     Dates: start: 20090524, end: 20090605
  2. PLAVIX [Concomitant]
     Route: 048
     Dates: start: 20090415

REACTIONS (2)
  - HAEMATEMESIS [None]
  - HEPATIC FUNCTION ABNORMAL [None]
